FAERS Safety Report 13864660 (Version 1)
Quarter: 2017Q3

REPORT INFORMATION
  Report Type: Spontaneous
  Country: US (occurrence: US)
  Receive Date: 20170812
  Receipt Date: 20170812
  Transmission Date: 20171127
  Serious: Yes (Other)
  Sender: FDA-Public Use
  Company Number: None

PATIENT
  Sex: Female
  Weight: 55.35 kg

DRUGS (13)
  1. TRAMADOL. [Concomitant]
     Active Substance: TRAMADOL
  2. LAMOTRIGINE 25MG TABLET [Suspect]
     Active Substance: LAMOTRIGINE
     Indication: ANXIETY
     Dosage: ?          QUANTITY:1 TABLET(S);?
     Route: 048
     Dates: start: 20170701, end: 20170806
  3. VITAMIN D3 [Concomitant]
     Active Substance: CHOLECALCIFEROL
  4. ESTRADIOL. [Concomitant]
     Active Substance: ESTRADIOL
  5. ADDERALL [Concomitant]
     Active Substance: AMPHETAMINE ASPARTATE\AMPHETAMINE SULFATE\DEXTROAMPHETAMINE SACCHARATE\DEXTROAMPHETAMINE SULFATE
  6. IBUPROFEN. [Concomitant]
     Active Substance: IBUPROFEN
  7. FIORICET [Concomitant]
     Active Substance: ACETAMINOPHEN\BUTALBITAL\CAFFEINE
  8. BIOTIN [Concomitant]
     Active Substance: BIOTIN
  9. VITAMIN B COMPLEX [Concomitant]
     Active Substance: CYANOCOBALAMIN\DEXPANTHENOL\NIACINAMIDE\PYRIDOXINE HYDROCHLORIDE\RIBOFLAVIN 5^-PHOSPHATE SODIUM\THIAMINE HYDROCHLORIDE\VITAMIN B COMPLEX
  10. CYMBALTA [Concomitant]
     Active Substance: DULOXETINE HYDROCHLORIDE
  11. MAGNESIUM CHLORIDE WITH CALCIUM [Concomitant]
  12. TRAZODONE [Concomitant]
     Active Substance: TRAZODONE HYDROCHLORIDE
  13. PROTANDIM [Concomitant]
     Active Substance: DIETARY SUPPLEMENT

REACTIONS (34)
  - Arthralgia [None]
  - Fatigue [None]
  - Hypopnoea [None]
  - Impaired work ability [None]
  - Pain in jaw [None]
  - Headache [None]
  - General physical condition abnormal [None]
  - Movement disorder [None]
  - Speech disorder [None]
  - Eye disorder [None]
  - Eye movement disorder [None]
  - Chest discomfort [None]
  - Irregular breathing [None]
  - Mental status changes [None]
  - Dizziness [None]
  - Abdominal pain [None]
  - Irritability [None]
  - Back pain [None]
  - Pain in extremity [None]
  - Decreased appetite [None]
  - Nausea [None]
  - Constipation [None]
  - Panic attack [None]
  - Feeling abnormal [None]
  - Neck pain [None]
  - Anger [None]
  - Eye pain [None]
  - Tremor [None]
  - Frustration tolerance decreased [None]
  - Agitation [None]
  - Mental disorder [None]
  - Suicidal ideation [None]
  - Vision blurred [None]
  - Musculoskeletal stiffness [None]

NARRATIVE: CASE EVENT DATE: 20170805
